FAERS Safety Report 7443618-4 (Version None)
Quarter: 2011Q2

REPORT INFORMATION
  Report Type: 
  Country: None (occurrence: None)
  Receive Date: 20110428
  Receipt Date: 20100831
  Transmission Date: 20111010
  Serious: No
  Sender: FDA-Public Use
  Company Number: US-BAUSCH-2010BL004882

PATIENT
  Age: 75 Year
  Sex: Female

DRUGS (4)
  1. COMBIVENT [Suspect]
     Indication: NASOPHARYNGITIS
     Route: 049
     Dates: start: 20100810
  2. IPRATROPIUM BROMIDE [Suspect]
     Indication: NASOPHARYNGITIS
     Route: 045
     Dates: start: 20100810
  3. SPIRIVA [Concomitant]
     Indication: BRONCHITIS CHRONIC
     Route: 049
     Dates: start: 20080101
  4. PREVACID [Suspect]
     Indication: PRODUCT USED FOR UNKNOWN INDICATION
     Route: 048
     Dates: start: 20100810

REACTIONS (1)
  - DYSPHONIA [None]
